FAERS Safety Report 18367771 (Version 2)
Quarter: 2020Q4

REPORT INFORMATION
  Report Type: Spontaneous
  Country: US (occurrence: US)
  Receive Date: 20201009
  Receipt Date: 20201030
  Transmission Date: 20210114
  Serious: Yes (Hospitalization)
  Sender: FDA-Public Use
  Company Number: US-INDIVIOR US-INDV-126680-2020

PATIENT
  Age: 70 Year
  Sex: Male

DRUGS (3)
  1. SUBOXONE [Suspect]
     Active Substance: BUPRENORPHINE HYDROCHLORIDE\NALOXONE HYDROCHLORIDE
     Indication: BACK PAIN
     Dosage: 4 MILLIGRAM, ONE TIME DOSE
     Route: 065
  2. UNSPECIFIED GENERIC BUPRENORPHINE/NALOXONE  FILM [Suspect]
     Active Substance: BUPRENORPHINE HYDROCHLORIDE\NALOXONE HYDROCHLORIDE
     Indication: BACK PAIN
     Dosage: 8 MILLIGRAM, QD
     Route: 060
  3. SUBOXONE [Suspect]
     Active Substance: BUPRENORPHINE HYDROCHLORIDE\NALOXONE HYDROCHLORIDE
     Indication: BACK PAIN
     Dosage: 8 MILLIGRAM, QD
     Route: 060

REACTIONS (9)
  - Post-traumatic stress disorder [Not Recovered/Not Resolved]
  - Anxiety [Unknown]
  - Hospitalisation [Recovered/Resolved]
  - Substance abuse [Unknown]
  - Off label use [Not Recovered/Not Resolved]
  - Constipation [Unknown]
  - Amnesia [Not Recovered/Not Resolved]
  - Dizziness [Unknown]
  - Drug dependence [Unknown]
